FAERS Safety Report 24754740 (Version 1)
Quarter: 2024Q4

REPORT INFORMATION
  Report Type: Spontaneous
  Country: US (occurrence: None)
  Receive Date: 20241219
  Receipt Date: 20241219
  Transmission Date: 20250114
  Serious: Yes (Death)
  Sender: Public
  Company Number: None

PATIENT
  Age: 92 Year
  Sex: Female

DRUGS (7)
  1. COLLAGENASE SANTYL [Suspect]
     Active Substance: COLLAGENASE CLOSTRIDIUM HISTOLYTICUM
     Dosage: 250 U/GM TOPICAL
     Route: 061
     Dates: start: 20241011, end: 202412
  2. BROVANA [Concomitant]
     Active Substance: ARFORMOTEROL TARTRATE
  3. DUONEB [Concomitant]
     Active Substance: ALBUTEROL SULFATE\IPRATROPIUM BROMIDE
  4. ALBUTEROL [Concomitant]
     Active Substance: ALBUTEROL
  5. BUDESONIDE INHALATION SOL [Concomitant]
  6. MUPIROCIN OINT [Concomitant]
  7. DILTIAZEM [Concomitant]
     Active Substance: DILTIAZEM

REACTIONS (1)
  - Death [None]

NARRATIVE: CASE EVENT DATE: 20241209
